FAERS Safety Report 4272577-0 (Version None)
Quarter: 2004Q1

REPORT INFORMATION
  Report Type: 
  Country: None (occurrence: None)
  Receive Date: 20040114
  Receipt Date: 20040114
  Transmission Date: 20041129
  Serious: Yes (Life-Threatening, Hospitalization, Disabling)
  Sender: FDA-Public Use
  Company Number: None

PATIENT
  Age: 52 Year
  Sex: Female
  Weight: 81.6475 kg

DRUGS (1)
  1. LORAZEPAM [Suspect]
     Indication: INSOMNIA
     Dosage: 1/2 OF .15 NIGHTLY ORAL
     Route: 048

REACTIONS (5)
  - ANXIETY [None]
  - DEPRESSION [None]
  - FEELING ABNORMAL [None]
  - IMPRISONMENT [None]
  - SUICIDE ATTEMPT [None]
